FAERS Safety Report 5196546-1 (Version None)
Quarter: 2006Q4

REPORT INFORMATION
  Report Type: 
  Country: None (occurrence: None)
  Receive Date: 20061227
  Receipt Date: 20061215
  Transmission Date: 20070319
  Serious: Yes (Hospitalization)
  Sender: FDA-Public Use
  Company Number: T06-JPN-05322-01

PATIENT
  Age: 77 Year
  Sex: Female

DRUGS (3)
  1. MEMANTINE HCL [Suspect]
     Indication: DEMENTIA ALZHEIMER'S TYPE
     Dates: start: 20061020, end: 20061208
  2. ASPIRIN [Concomitant]
  3. PROPIVERINE HYDROCHLORIDE [Concomitant]

REACTIONS (4)
  - FALL [None]
  - IMMOBILE [None]
  - PYREXIA [None]
  - TREMOR [None]
